FAERS Safety Report 12757866 (Version 2)
Quarter: 2016Q4

REPORT INFORMATION
  Report Type: Spontaneous
  Country: US (occurrence: US)
  Receive Date: 20160919
  Receipt Date: 20161118
  Transmission Date: 20170207
  Serious: No
  Sender: FDA-Public Use
  Company Number: US-PFIZER INC-2016432642

PATIENT
  Age: 60 Year
  Sex: Female

DRUGS (1)
  1. GLIPIZIDE. [Suspect]
     Active Substance: GLIPIZIDE
     Indication: TYPE 2 DIABETES MELLITUS
     Dosage: 1 DF, 1X/DAY (^2.5^, 1 PER DAY )
     Dates: start: 201601

REACTIONS (5)
  - Blood glucose decreased [Unknown]
  - Somnolence [Unknown]
  - Asthenia [Unknown]
  - Weight increased [Unknown]
  - Fatigue [Unknown]

NARRATIVE: CASE EVENT DATE: 201601
